FAERS Safety Report 26157779 (Version 1)
Quarter: 2025Q4

REPORT INFORMATION
  Report Type: Spontaneous
  Country: None (occurrence: EU)
  Receive Date: 20251215
  Receipt Date: 20251215
  Transmission Date: 20260118
  Serious: Yes (Death, Other)
  Sender: AURINIA PHARMACEUTICALS
  Company Number: GB-MMM-Otsuka-AJBX4GM3

PATIENT

DRUGS (1)
  1. LUPKYNIS [Suspect]
     Active Substance: VOCLOSPORIN
     Indication: Lupus nephritis
     Dosage: UNK
     Route: 061

REACTIONS (1)
  - Death [Fatal]
